FAERS Safety Report 7368257-5 (Version None)
Quarter: 2011Q1

REPORT INFORMATION
  Report Type: 
  Country: None (occurrence: None)
  Receive Date: 20110311
  Receipt Date: 20110131
  Transmission Date: 20110831
  Serious: Yes (Death)
  Sender: FDA-Public Use
  Company Number: 201110073

PATIENT
  Age: 45 Year
  Sex: Female

DRUGS (4)
  1. BUPIVACAINE HCL [Concomitant]
  2. LIORESAL [Suspect]
     Indication: MUSCLE SPASTICITY
     Dosage: 79.93 MCG/DAY INTRATHECAL
     Route: 037
  3. DROPERIDOL [Concomitant]
  4. DILAUDID [Concomitant]

REACTIONS (1)
  - LUNG NEOPLASM MALIGNANT [None]
